FAERS Safety Report 9146213 (Version 1)
Quarter: 2013Q1

REPORT INFORMATION
  Report Type: Spontaneous
  Country: US (occurrence: US)
  Receive Date: 20130307
  Receipt Date: 20130307
  Transmission Date: 20140127
  Serious: Yes (Hospitalization)
  Sender: FDA-Public Use
  Company Number: PHEH2013US005398

PATIENT
  Sex: 0

DRUGS (3)
  1. DIOVAN HCT [Suspect]
     Dosage: 25 MG, QD
     Route: 048
  2. DIOVAN HCT [Suspect]
     Dosage: 0.5 DF, UNK
  3. PREMARIN [Concomitant]
     Dosage: UNK UKN, UNK

REACTIONS (4)
  - Ankle fracture [Unknown]
  - Gastrointestinal disorder [Unknown]
  - Weight decreased [Unknown]
  - Wrong technique in drug usage process [Unknown]
